FAERS Safety Report 5264045-4 (Version None)
Quarter: 2007Q1

REPORT INFORMATION
  Report Type: 
  Country: None (occurrence: None)
  Receive Date: 20070313
  Receipt Date: 20070301
  Transmission Date: 20070707
  Serious: Yes (Other)
  Sender: FDA-Public Use
  Company Number: GB-PFIZER INC-2006097196

PATIENT
  Age: 36 Year
  Sex: Male

DRUGS (1)
  1. EPANUTIN SUSPENSION [Suspect]
     Indication: EPILEPSY
     Dosage: TEXT:UNKNOWN-FREQ:UNKNOWN
     Route: 048

REACTIONS (2)
  - DRUG LEVEL BELOW THERAPEUTIC [None]
  - RENAL FAILURE [None]
